FAERS Safety Report 7629650-6 (Version None)
Quarter: 2011Q3

REPORT INFORMATION
  Report Type: 
  Country: None (occurrence: None)
  Receive Date: 20110722
  Receipt Date: 20110715
  Transmission Date: 20111222
  Serious: Yes (Life-Threatening, Hospitalization)
  Sender: FDA-Public Use
  Company Number: US-JNJFOC-20110706927

PATIENT
  Age: 81 Year
  Sex: Female

DRUGS (6)
  1. NORVASC [Suspect]
     Indication: PRODUCT USED FOR UNKNOWN INDICATION
     Route: 065
     Dates: start: 20110324
  2. CALCIUM ANTAGONISTS [Suspect]
     Indication: PRODUCT USED FOR UNKNOWN INDICATION
     Route: 065
     Dates: start: 20110324
  3. ALPRAZOLAM [Suspect]
     Indication: PRODUCT USED FOR UNKNOWN INDICATION
     Route: 065
     Dates: start: 20110324
  4. SYNTHROID [Suspect]
     Indication: PRODUCT USED FOR UNKNOWN INDICATION
     Route: 065
     Dates: start: 20110324
  5. AMBIEN CR [Suspect]
     Indication: PRODUCT USED FOR UNKNOWN INDICATION
     Route: 065
     Dates: start: 20110324
  6. ULTRACET [Suspect]
     Indication: PRODUCT USED FOR UNKNOWN INDICATION
     Route: 065
     Dates: start: 20110324

REACTIONS (8)
  - UNRESPONSIVE TO STIMULI [None]
  - PUPILLARY REFLEX IMPAIRED [None]
  - ABDOMINAL DISTENSION [None]
  - TOXICITY TO VARIOUS AGENTS [None]
  - INTENTIONAL DRUG MISUSE [None]
  - BLOOD PRESSURE DECREASED [None]
  - PYREXIA [None]
  - COUGH DECREASED [None]
